FAERS Safety Report 8578773-6 (Version None)
Quarter: 2012Q3

REPORT INFORMATION
  Report Type: 
  Country: None (occurrence: None)
  Receive Date: 20120808
  Receipt Date: 20120730
  Transmission Date: 20120928
  Serious: Yes (Other)
  Sender: FDA-Public Use
  Company Number: US-ASTRAZENECA-2006UW28340

PATIENT
  Age: 65 Year
  Sex: Female
  Weight: 49 kg

DRUGS (9)
  1. SEROQUEL [Suspect]
     Route: 048
  2. SEROQUEL [Suspect]
     Route: 048
  3. SEROQUEL [Suspect]
     Indication: BIPOLAR DISORDER
     Route: 048
     Dates: start: 20060901
  4. SEROQUEL [Suspect]
     Route: 048
  5. SEROQUEL [Suspect]
     Indication: ANXIETY
     Route: 048
     Dates: start: 20060901
  6. SEROQUEL [Suspect]
     Route: 048
  7. SEROQUEL [Suspect]
     Route: 048
  8. SEROQUEL [Suspect]
     Indication: ANGER
     Route: 048
     Dates: start: 20060901
  9. SEROQUEL [Suspect]
     Route: 048

REACTIONS (9)
  - RASH [None]
  - INTENTIONAL DRUG MISUSE [None]
  - DYSPNOEA [None]
  - DIZZINESS [None]
  - DRUG HYPERSENSITIVITY [None]
  - PRURITUS [None]
  - THERAPEUTIC RESPONSE INCREASED [None]
  - MALAISE [None]
  - CONSTIPATION [None]
